FAERS Safety Report 8590839-3 (Version None)
Quarter: 2012Q3

REPORT INFORMATION
  Report Type: 
  Country: None (occurrence: None)
  Receive Date: 20120813
  Receipt Date: 20120806
  Transmission Date: 20120928
  Serious: Yes (Hospitalization)
  Sender: FDA-Public Use
  Company Number: JP-VERTEX PHARMACEUTICALS INC.-AE-2012-011483

PATIENT
  Age: 56 Year
  Sex: Male

DRUGS (7)
  1. TELAVIC (TELAPREVIR) [Suspect]
     Indication: HEPATITIS C
     Route: 048
     Dates: start: 20120601, end: 20120722
  2. POLARAMINE [Concomitant]
     Route: 048
     Dates: start: 20120601
  3. IBRUPROFEN [Concomitant]
     Route: 048
     Dates: start: 20120601, end: 20120601
  4. REBETOL [Concomitant]
     Indication: HEPATITIS C
     Route: 048
     Dates: start: 20120601, end: 20120722
  5. LANSOPRAZOLE [Concomitant]
     Route: 048
  6. PEG-INTRON [Concomitant]
     Indication: HEPATITIS C
     Route: 058
     Dates: start: 20120601, end: 20120720
  7. OXATOMIDE [Concomitant]
     Route: 048
     Dates: start: 20120601

REACTIONS (2)
  - ECZEMA [None]
  - ERYTHEMA MULTIFORME [None]
